FAERS Safety Report 10802404 (Version 2)
Quarter: 2015Q1

REPORT INFORMATION
  Report Type: Spontaneous
  Country: MX (occurrence: MX)
  Receive Date: 20150217
  Receipt Date: 20150325
  Transmission Date: 20150721
  Serious: Yes (Other)
  Sender: FDA-Public Use
  Company Number: MX-SA-2015SA017318

PATIENT
  Sex: Female

DRUGS (2)
  1. COAPROVEL [Suspect]
     Active Substance: HYDROCHLOROTHIAZIDE\IRBESARTAN
     Route: 065
  2. APROVASC [Suspect]
     Active Substance: AMLODIPINE BESYLATE\IRBESARTAN
     Route: 065

REACTIONS (1)
  - Hypertensive crisis [Unknown]
